FAERS Safety Report 5924367-8 (Version None)
Quarter: 2008Q4

REPORT INFORMATION
  Report Type: 
  Country: None (occurrence: None)
  Receive Date: 20081020
  Receipt Date: 20081014
  Transmission Date: 20090506
  Serious: Yes (Hospitalization, Other)
  Sender: FDA-Public Use
  Company Number: US-ELI_LILLY_AND_COMPANY-US200809001250

PATIENT
  Sex: Male
  Weight: 110.66 kg

DRUGS (10)
  1. BYETTA [Suspect]
     Indication: TYPE 2 DIABETES MELLITUS
     Dosage: 5 UG, 2/D
     Route: 058
     Dates: start: 20061201, end: 20070201
  2. BYETTA [Suspect]
     Dosage: 10 UG, 2/D
     Route: 058
     Dates: start: 20070101, end: 20080801
  3. METFORMIN HYDROCHLORIDE [Concomitant]
     Dosage: 2000 MG, DAILY (1/D)
     Route: 065
  4. GLIPIZIDE [Concomitant]
     Dosage: 20 MG, DAILY (1/D)
     Route: 065
  5. AVANDIA [Concomitant]
     Dosage: 8 MG, DAILY (1/D)
     Route: 065
  6. VYTORIN [Concomitant]
     Dosage: UNK, UNKNOWN
     Route: 065
  7. LISINOPRIL [Concomitant]
     Dosage: UNK, UNKNOWN
     Route: 065
  8. HYDROCHLOROTHIAZIDE [Concomitant]
     Dosage: UNK, UNKNOWN
     Route: 065
  9. TRICOR [Concomitant]
     Indication: HYPERTRIGLYCERIDAEMIA
     Dosage: UNK, UNKNOWN
     Route: 065
  10. FISH OIL [Concomitant]
     Indication: HYPERTRIGLYCERIDAEMIA
     Dosage: UNK, UNKNOWN
     Route: 065

REACTIONS (1)
  - PANCREATITIS [None]
